FAERS Safety Report 23944904 (Version 3)
Quarter: 2024Q2

REPORT INFORMATION
  Report Type: Spontaneous
  Country: JP (occurrence: JP)
  Receive Date: 20240606
  Receipt Date: 20240627
  Transmission Date: 20240716
  Serious: Yes (Hospitalization, Other)
  Sender: FDA-Public Use
  Company Number: JP-GLAXOSMITHKLINE-JP2024JPN067898

PATIENT

DRUGS (1)
  1. DAPRODUSTAT [Suspect]
     Active Substance: DAPRODUSTAT
     Dosage: UNK, DOSE INCREASE INDICATED
     Route: 048

REACTIONS (4)
  - Pulmonary artery thrombosis [Unknown]
  - Deep vein thrombosis [Unknown]
  - Femoral neck fracture [Unknown]
  - Anaemia postoperative [Recovering/Resolving]

NARRATIVE: CASE EVENT DATE: 20240501
